FAERS Safety Report 19857713 (Version 1)
Quarter: 2021Q3

REPORT INFORMATION
  Report Type: Report from Study
  Country: None (occurrence: CA)
  Receive Date: 20210921
  Receipt Date: 20210921
  Transmission Date: 20211014
  Serious: Yes (Other)
  Sender: FDA-Public Use
  Company Number: CA-ABBVIE-21K-028-4062398-00

PATIENT
  Age: 70 Year
  Sex: Female

DRUGS (2)
  1. HUMIRA [Suspect]
     Active Substance: ADALIMUMAB
     Indication: PSORIATIC ARTHROPATHY
     Route: 058
     Dates: start: 20200420, end: 2021
  2. HUMIRA [Suspect]
     Active Substance: ADALIMUMAB
     Route: 058
     Dates: start: 2021

REACTIONS (3)
  - Psoriatic arthropathy [Recovered/Resolved]
  - Osteoarthritis [Unknown]
  - Limb operation [Unknown]

NARRATIVE: CASE EVENT DATE: 2021
